FAERS Safety Report 5474946-X (Version None)
Quarter: 2007Q3

REPORT INFORMATION
  Report Type: 
  Country: None (occurrence: None)
  Receive Date: 20070831
  Receipt Date: 20070511
  Transmission Date: 20080115
  Serious: No
  Sender: FDA-Public Use
  Company Number: 241378

PATIENT
  Sex: Male

DRUGS (5)
  1. LUCENTIS [Suspect]
     Indication: MACULAR DEGENERATION
     Dosage: INTRAVITREAL
     Dates: start: 20070201
  2. METOPROLOL TARTRATE [Concomitant]
  3. COZAAR [Concomitant]
  4. VYTORIN [Concomitant]
  5. COUMADIN [Concomitant]

REACTIONS (1)
  - ANTICOAGULATION DRUG LEVEL ABOVE THERAPEUTIC [None]
